FAERS Safety Report 13371550 (Version 2)
Quarter: 2017Q2

REPORT INFORMATION
  Report Type: Report from Study
  Country: US (occurrence: US)
  Receive Date: 20170324
  Receipt Date: 20170403
  Transmission Date: 20170830
  Serious: No
  Sender: FDA-Public Use
  Company Number: US-009507513-1703USA004451

PATIENT
  Sex: Female

DRUGS (1)
  1. NEXPLANON [Suspect]
     Active Substance: ETONOGESTREL
     Dosage: IMPLANT
     Route: 059
     Dates: start: 2015

REACTIONS (10)
  - Device difficult to use [Recovered/Resolved]
  - Frustration tolerance decreased [Recovered/Resolved]
  - Depression [Recovered/Resolved]
  - Menometrorrhagia [Unknown]
  - Menstruation irregular [Unknown]
  - Confusional state [Recovered/Resolved]
  - Anxiety [Unknown]
  - Amenorrhoea [Recovered/Resolved]
  - Pain in extremity [Recovering/Resolving]
  - Irritability [Recovered/Resolved]

NARRATIVE: CASE EVENT DATE: 2015
